FAERS Safety Report 8967263 (Version 1)
Quarter: 2012Q4

REPORT INFORMATION
  Report Type: 
  Country: US (occurrence: US)
  Receive Date: 20121214
  Receipt Date: 20121214
  Transmission Date: 20130627
  Serious: No
  Sender: FDA-Public Use
  Company Number: US-GLAXOSMITHKLINE-A0976141A

PATIENT
  Age: 73 Year
  Sex: Male

DRUGS (2)
  1. FLONASE [Suspect]
     Indication: SINUS DISORDER
     Route: 045
     Dates: start: 201204
  2. BLOOD PRESSURE MEDICATION [Concomitant]

REACTIONS (1)
  - Blood glucose increased [Not Recovered/Not Resolved]
